FAERS Safety Report 6590787-4 (Version None)
Quarter: 2010Q1

REPORT INFORMATION
  Report Type: 
  Country: None (occurrence: None)
  Receive Date: 20100219
  Receipt Date: 20100210
  Transmission Date: 20100710
  Serious: Yes (Death, Other)
  Sender: FDA-Public Use
  Company Number: FR-GENZYME-CLOF-1000861

PATIENT
  Sex: Female

DRUGS (5)
  1. EVOLTRA [Suspect]
     Indication: ACUTE LYMPHOCYTIC LEUKAEMIA
     Dosage: 30 MG/M2, QDX5
     Route: 042
     Dates: start: 20081028, end: 20081101
  2. DEXAMETHASONE [Suspect]
     Indication: ACUTE LYMPHOCYTIC LEUKAEMIA
     Dosage: 10 MG/M2, QDX5
     Route: 048
     Dates: start: 20081028, end: 20081101
  3. MITOXANTRONE [Suspect]
     Indication: ACUTE LYMPHOCYTIC LEUKAEMIA
     Dosage: 8 MCG/M2, UNK
     Route: 042
     Dates: start: 20081030, end: 20081031
  4. ETOPOSIDE [Suspect]
     Indication: ACUTE LYMPHOCYTIC LEUKAEMIA
     Dosage: 150 MG/M2, UNK
     Route: 042
     Dates: start: 20081101, end: 20081101
  5. PEG-ASPARAGINASE [Suspect]
     Indication: ACUTE LYMPHOCYTIC LEUKAEMIA
     Dosage: 2500 OTHER, UNK
     Route: 042
     Dates: start: 20081103, end: 20081103

REACTIONS (5)
  - CANDIDA SEPSIS [None]
  - COMA [None]
  - CONFUSIONAL STATE [None]
  - ENCEPHALITIS [None]
  - EPILEPSY [None]
